FAERS Safety Report 5160202-6 (Version None)
Quarter: 2006Q4

REPORT INFORMATION
  Report Type: 
  Country: None (occurrence: None)
  Receive Date: 20061120
  Receipt Date: 20061103
  Transmission Date: 20070319
  Serious: Yes (Congenital Anomaly)
  Sender: FDA-Public Use
  Company Number: 8019978

PATIENT
  Sex: Male

DRUGS (3)
  1. KEPPRA [Suspect]
     Dosage: 250 MG 2/D;
     Dates: start: 20060101, end: 20060101
  2. TOPAMAX [Suspect]
     Dosage: 100 MG 2/D;
     Dates: end: 20060101
  3. TOPAMAX [Suspect]
     Dosage: 100 MG 2.D;
     Dates: start: 20060707

REACTIONS (5)
  - CRYPTORCHISM [None]
  - DRUG EXPOSURE DURING PREGNANCY [None]
  - DRUG INEFFECTIVE [None]
  - EAGLE BARRETT SYNDROME [None]
  - URINARY TRACT MALFORMATION [None]
